FAERS Safety Report 13061664 (Version 1)
Quarter: 2016Q4

REPORT INFORMATION
  Report Type: Spontaneous
  Country: US (occurrence: US)
  Receive Date: 20161226
  Receipt Date: 20161226
  Transmission Date: 20170207
  Serious: No
  Sender: FDA-Public Use
  Company Number: US-NOVEN PHARMACEUTICALS, INC.-US2016002124

PATIENT

DRUGS (2)
  1. MINIVELLE [Suspect]
     Active Substance: ESTRADIOL
     Indication: NIGHT SWEATS
  2. MINIVELLE [Suspect]
     Active Substance: ESTRADIOL
     Indication: HOT FLUSH
     Dosage: 0.075 MG, UNKNOWN
     Route: 062
     Dates: start: 201602

REACTIONS (7)
  - Blood oestrogen decreased [Not Recovered/Not Resolved]
  - Hyperkeratosis [Not Recovered/Not Resolved]
  - Application site dryness [Not Recovered/Not Resolved]
  - Application site erythema [Not Recovered/Not Resolved]
  - Application site pain [Not Recovered/Not Resolved]
  - Application site swelling [Not Recovered/Not Resolved]
  - Application site pruritus [Not Recovered/Not Resolved]

NARRATIVE: CASE EVENT DATE: 201607
